FAERS Safety Report 11779795 (Version 5)
Quarter: 2015Q4

REPORT INFORMATION
  Report Type: Spontaneous
  Country: US (occurrence: US)
  Receive Date: 20151125
  Receipt Date: 20151229
  Transmission Date: 20160304
  Serious: Yes (Hospitalization)
  Sender: FDA-Public Use
  Company Number: US-ACTELION-A-US2015-127131

PATIENT
  Age: 77 Year
  Sex: Female

DRUGS (2)
  1. OPSUMIT [Suspect]
     Active Substance: MACITENTAN
     Indication: PULMONARY ARTERIAL HYPERTENSION
     Dosage: UNK
     Route: 048
     Dates: start: 20141107, end: 20151015
  2. VELETRI [Suspect]
     Active Substance: EPOPROSTENOL
     Indication: PULMONARY ARTERIAL HYPERTENSION
     Dosage: 8 NG/KG, PER MIN
     Route: 042

REACTIONS (10)
  - Rash [Not Recovered/Not Resolved]
  - Herpes zoster [Unknown]
  - Diarrhoea [Not Recovered/Not Resolved]
  - Pain in jaw [Not Recovered/Not Resolved]
  - Catheter site related reaction [Unknown]
  - Acute febrile neutrophilic dermatosis [Unknown]
  - Fatigue [Unknown]
  - Cardiac failure acute [Unknown]
  - Catheter site pain [Recovered/Resolved]
  - Catheter site erythema [Recovered/Resolved]

NARRATIVE: CASE EVENT DATE: 2015
